FAERS Safety Report 9651047 (Version 1)
Quarter: 2013Q4

REPORT INFORMATION
  Report Type: Spontaneous
  Country: US (occurrence: US)
  Receive Date: 20131029
  Receipt Date: 20131029
  Transmission Date: 20140711
  Serious: Yes (Other)
  Sender: FDA-Public Use
  Company Number: US-PFIZER INC-2013302147

PATIENT
  Age: 41 Year
  Sex: Female

DRUGS (1)
  1. METAXALONE [Suspect]
     Dosage: 16 GRAMS, UNK
     Route: 048

REACTIONS (7)
  - Overdose [Unknown]
  - Mental status changes [Recovered/Resolved]
  - Hypotension [Unknown]
  - Muscle rigidity [Recovered/Resolved]
  - Clonus [Unknown]
  - Mydriasis [Unknown]
  - Tachycardia [Unknown]
